FAERS Safety Report 17720900 (Version 1)
Quarter: 2020Q2

REPORT INFORMATION
  Report Type: Spontaneous
  Country: US (occurrence: US)
  Receive Date: 20200428
  Receipt Date: 20200428
  Transmission Date: 20200714
  Serious: Yes (Other)
  Sender: FDA-Public Use
  Company Number: US-ROCHE-2280277

PATIENT
  Sex: Male

DRUGS (8)
  1. OXALIPLATIN. [Concomitant]
     Active Substance: OXALIPLATIN
     Indication: METASTATIC BRONCHIAL CARCINOMA
     Dosage: OVER 2 HOURS
     Route: 065
  2. LEUCOVORIN [FOLINIC ACID] [Concomitant]
     Active Substance: LEUCOVORIN
     Indication: METASTATIC BRONCHIAL CARCINOMA
     Dosage: OVER 2 HOURS
     Route: 065
  3. ZOLEDRONIC ACID. [Concomitant]
     Active Substance: ZOLEDRONIC ACID
     Indication: METASTATIC BRONCHIAL CARCINOMA
     Route: 065
     Dates: start: 200910
  4. BEVACIZUMAB. [Suspect]
     Active Substance: BEVACIZUMAB
     Indication: METASTATIC BRONCHIAL CARCINOMA
     Route: 065
  5. 5-FLUOROURACIL [FLUOROURACIL] [Concomitant]
     Active Substance: FLUOROURACIL
     Dosage: OVER 46 HOURS
     Route: 042
  6. 5-FLUOROURACIL [FLUOROURACIL] [Concomitant]
     Active Substance: FLUOROURACIL
     Indication: METASTATIC BRONCHIAL CARCINOMA
     Dosage: OVER 2 HOURS
     Route: 042
  7. AMLODIPINE [Concomitant]
     Active Substance: AMLODIPINE BESYLATE
     Indication: HYPERTENSION
     Route: 065
  8. OCTREOTIDE. [Concomitant]
     Active Substance: OCTREOTIDE
     Indication: METASTATIC BRONCHIAL CARCINOMA

REACTIONS (7)
  - Anaemia [Unknown]
  - Peripheral sensory neuropathy [Unknown]
  - Neutropenia [Unknown]
  - Tinnitus [Unknown]
  - Mucosal inflammation [Unknown]
  - Proteinuria [Unknown]
  - Thrombocytopenia [Unknown]
